FAERS Safety Report 23129194 (Version 2)
Quarter: 2023Q4

REPORT INFORMATION
  Report Type: Spontaneous
  Country: US (occurrence: US)
  Receive Date: 20231031
  Receipt Date: 20231205
  Transmission Date: 20240109
  Serious: No
  Sender: FDA-Public Use
  Company Number: US-BRISTOL-MYERS SQUIBB COMPANY-2023-154076

PATIENT
  Age: 68 Year
  Sex: Male
  Weight: 124.28 kg

DRUGS (1)
  1. REVLIMID [Suspect]
     Active Substance: LENALIDOMIDE
     Indication: Plasma cell myeloma
     Dosage: 1-14ON,7D OFF
     Route: 048

REACTIONS (6)
  - Hiccups [Unknown]
  - Constipation [Unknown]
  - Rash [Unknown]
  - Off label use [Unknown]
  - Abdominal distension [Unknown]
  - Dizziness [Unknown]
